FAERS Safety Report 11331246 (Version 1)
Quarter: 2015Q3

REPORT INFORMATION
  Report Type: Spontaneous
  Country: CN (occurrence: CN)
  Receive Date: 20150803
  Receipt Date: 20150803
  Transmission Date: 20151125
  Serious: Yes (Hospitalization, Other)
  Sender: FDA-Public Use
  Company Number: CN-ELI_LILLY_AND_COMPANY-CN201507008188

PATIENT
  Sex: Female
  Weight: 3.7 kg

DRUGS (2)
  1. CEFACLOR. [Suspect]
     Active Substance: CEFACLOR
     Indication: BRONCHITIS
     Dosage: 25 MG, BID
     Route: 048
     Dates: start: 20150210, end: 20150214
  2. ACETYLCYSTEINE. [Concomitant]
     Active Substance: ACETYLCYSTEINE
     Indication: BRONCHITIS
     Dosage: 0.35 G, TID
     Route: 048
     Dates: start: 20150210, end: 20150214

REACTIONS (2)
  - Liver function test abnormal [Unknown]
  - Bronchitis [Unknown]
